FAERS Safety Report 16530546 (Version 3)
Quarter: 2019Q3

REPORT INFORMATION
  Report Type: Report from Study
  Country: US (occurrence: US)
  Receive Date: 20190704
  Receipt Date: 20190905
  Transmission Date: 20191004
  Serious: Yes (Hospitalization, Other)
  Sender: FDA-Public Use
  Company Number: US-SA-2018SA262911

PATIENT
  Age: 63 Year
  Sex: Female

DRUGS (3)
  1. INSULIN GLARGINE [Suspect]
     Active Substance: INSULIN GLARGINE
     Dosage: UNK, BID
     Route: 065
  2. INSULIN GLARGINE [Suspect]
     Active Substance: INSULIN GLARGINE
     Indication: TYPE 2 DIABETES MELLITUS
     Dosage: 55 U, HS, AT NIGHT AT BEDTIME
     Route: 058
  3. INSULIN GLARGINE [Suspect]
     Active Substance: INSULIN GLARGINE
     Dosage: 65 U, QD
     Route: 058

REACTIONS (14)
  - Cough [Unknown]
  - Memory impairment [Unknown]
  - Fall [Unknown]
  - Osteoporosis [Unknown]
  - Joint swelling [Unknown]
  - Skin discolouration [Unknown]
  - Lower limb fracture [Recovering/Resolving]
  - Arthralgia [Unknown]
  - Hypoacusis [Unknown]
  - Patella fracture [Unknown]
  - Arthritis [Unknown]
  - Inappropriate schedule of product administration [Unknown]
  - Peripheral swelling [Unknown]
  - Sneezing [Unknown]
